FAERS Safety Report 5890393-0 (Version None)
Quarter: 2008Q3

REPORT INFORMATION
  Report Type: 
  Country: None (occurrence: None)
  Receive Date: 20080918
  Receipt Date: 20080905
  Transmission Date: 20090109
  Serious: Yes (Hospitalization)
  Sender: FDA-Public Use
  Company Number: 236976K07USA

PATIENT
  Age: 46 Year
  Sex: Female
  Weight: 45.3597 kg

DRUGS (3)
  1. REBIF [Suspect]
     Indication: MULTIPLE SCLEROSIS
     Dosage: 44 MCG, 3 IN 1 WEEKS, SUBCUTANEOUS, 8.8 MCG, 3 IN 1 DAYS, SUBCUTANEOUS, 44 MCG, 3  IN 1 WEEKS, SUBCU
     Route: 058
     Dates: start: 20070820, end: 20070101
  2. REBIF [Suspect]
     Indication: MULTIPLE SCLEROSIS
     Dosage: 44 MCG, 3 IN 1 WEEKS, SUBCUTANEOUS, 8.8 MCG, 3 IN 1 DAYS, SUBCUTANEOUS, 44 MCG, 3  IN 1 WEEKS, SUBCU
     Route: 058
     Dates: start: 20070101, end: 20070319
  3. REBIF [Suspect]
     Indication: MULTIPLE SCLEROSIS
     Dosage: 44 MCG, 3 IN 1 WEEKS, SUBCUTANEOUS, 8.8 MCG, 3 IN 1 DAYS, SUBCUTANEOUS, 44 MCG, 3  IN 1 WEEKS, SUBCU
     Route: 058
     Dates: start: 20070101, end: 20080601

REACTIONS (6)
  - CONDITION AGGRAVATED [None]
  - DISEASE COMPLICATION [None]
  - INTESTINAL FISTULA [None]
  - INTESTINAL OBSTRUCTION [None]
  - MULTIPLE SCLEROSIS [None]
  - WOUND DEHISCENCE [None]
